FAERS Safety Report 4296753-6 (Version None)
Quarter: 2004Q1

REPORT INFORMATION
  Report Type: 
  Country: None (occurrence: None)
  Receive Date: 20040126
  Receipt Date: 20030909
  Transmission Date: 20041129
  Serious: No
  Sender: FDA-Public Use
  Company Number: USA030946710

PATIENT
  Age: 54 Year
  Sex: Female

DRUGS (2)
  1. STRATTERA [Suspect]
     Dosage: 40 MG/DAY
     Dates: end: 20030901
  2. PROVIGIL [Concomitant]

REACTIONS (4)
  - FATIGUE [None]
  - HYPERVIGILANCE [None]
  - PALPITATIONS [None]
  - SOMNOLENCE [None]
